FAERS Safety Report 12649359 (Version 1)
Quarter: 2016Q3

REPORT INFORMATION
  Report Type: Report from Study
  Country: US (occurrence: US)
  Receive Date: 20160812
  Receipt Date: 20160812
  Transmission Date: 20161109
  Serious: Yes (Disabling)
  Sender: FDA-Public Use
  Company Number: US-EMD SERONO-7219122

PATIENT
  Age: 42 Year
  Sex: Female

DRUGS (4)
  1. EPIPEN                             /00003901/ [Concomitant]
     Indication: DRUG HYPERSENSITIVITY
  2. REBIF [Suspect]
     Active Substance: INTERFERON BETA-1A
     Indication: PRODUCT USED FOR UNKNOWN INDICATION
     Route: 058
     Dates: start: 200909, end: 201009
  3. TYLENOL [Concomitant]
     Active Substance: ACETAMINOPHEN
     Indication: PREMEDICATION
  4. REBIF [Suspect]
     Active Substance: INTERFERON BETA-1A
     Route: 058
     Dates: start: 201102, end: 201306

REACTIONS (4)
  - Urticaria [Recovered/Resolved]
  - Deafness [Not Recovered/Not Resolved]
  - Product quality issue [Unknown]
  - Oropharyngeal pain [Not Recovered/Not Resolved]

NARRATIVE: CASE EVENT DATE: 201306
